FAERS Safety Report 23932921 (Version 14)
Quarter: 2025Q1

REPORT INFORMATION
  Report Type: Spontaneous
  Country: US (occurrence: US)
  Receive Date: 20240603
  Receipt Date: 20250218
  Transmission Date: 20250409
  Serious: No
  Sender: PFIZER
  Company Number: US-PFIZER INC-202400180782

PATIENT
  Age: 5 Year
  Sex: Female
  Weight: 13.61 kg

DRUGS (1)
  1. GENOTROPIN [Suspect]
     Active Substance: SOMATROPIN
     Dosage: 0.4 MG, DAILY
     Route: 058

REACTIONS (4)
  - Nightmare [Unknown]
  - Drug dose omission by device [Unknown]
  - Device malfunction [Unknown]
  - Device leakage [Unknown]
